FAERS Safety Report 5368300-9 (Version None)
Quarter: 2007Q2

REPORT INFORMATION
  Report Type: 
  Country: None (occurrence: None)
  Receive Date: 20070625
  Receipt Date: 20070613
  Transmission Date: 20071010
  Serious: Yes (Other)
  Sender: FDA-Public Use
  Company Number: DEWYE860015JUN07

PATIENT
  Weight: 2.4 kg

DRUGS (4)
  1. VENLAFAXINE HCL [Suspect]
     Indication: DEPRESSION
     Route: 064
     Dates: start: 20020101
  2. VENLAFAXINE HCL [Suspect]
     Indication: APATHY
  3. FOLIC ACID [Concomitant]
     Dosage: UNKNOWN
     Route: 064
  4. IRON [Concomitant]
     Dosage: UNKNOWN
     Route: 064

REACTIONS (1)
  - UMBILICAL CORD AROUND NECK [None]
